FAERS Safety Report 10775301 (Version 1)
Quarter: 2015Q1

REPORT INFORMATION
  Report Type: Spontaneous
  Country: JP (occurrence: JP)
  Receive Date: 20150209
  Receipt Date: 20150209
  Transmission Date: 20150721
  Serious: Yes (Death, Other)
  Sender: FDA-Public Use
  Company Number: JP-AMGEN-JPNSP2015011661

PATIENT

DRUGS (1)
  1. GRAN [Suspect]
     Active Substance: FILGRASTIM
     Indication: ACUTE PROMYELOCYTIC LEUKAEMIA
     Dosage: UNK
     Route: 065

REACTIONS (3)
  - Blast cell count increased [Unknown]
  - Acute promyelocytic leukaemia [Fatal]
  - Disseminated intravascular coagulation [Unknown]
